FAERS Safety Report 18149955 (Version 1)
Quarter: 2020Q3

REPORT INFORMATION
  Report Type: Spontaneous
  Country: US (occurrence: US)
  Receive Date: 20200814
  Receipt Date: 20200814
  Transmission Date: 20201103
  Serious: Yes (Other)
  Sender: FDA-Public Use
  Company Number: US-EMCURE PHARMACEUTICALS LTD-2020-EPL-001065

PATIENT
  Age: 66 Year
  Sex: Female

DRUGS (1)
  1. BUSPIRONE [Suspect]
     Active Substance: BUSPIRONE HYDROCHLORIDE
     Indication: PRODUCT USED FOR UNKNOWN INDICATION
     Dosage: UNK, (THE PATIENT WOULD SNORT OR SMOKE BUSPIRONE)

REACTIONS (7)
  - Agitation [Unknown]
  - Drooling [Unknown]
  - Drug abuse [Unknown]
  - Feeling abnormal [Unknown]
  - Somnolence [Unknown]
  - Syncope [Unknown]
  - Hallucination, visual [Unknown]
